FAERS Safety Report 10176637 (Version 1)
Quarter: 2014Q2

REPORT INFORMATION
  Report Type: Spontaneous
  Country: IT (occurrence: None)
  Receive Date: 20140514
  Receipt Date: 20140514
  Transmission Date: 20141212
  Serious: Yes (Other)
  Sender: FDA-Public Use
  Company Number: 2325834

PATIENT
  Age: 74 Year
  Sex: Male
  Weight: 83 kg

DRUGS (4)
  1. IRINOTECAN HYDROCHLORIDE [Suspect]
     Indication: COLON CANCER
     Dosage: CYCLICAL
     Route: 042
     Dates: start: 20130820, end: 20140220
  2. FLUOROURACIL [Suspect]
     Indication: COLON CANCER
     Dosage: CYCLICAL
     Route: 040
     Dates: start: 20130820, end: 20140222
  3. ERBITUX [Suspect]
     Indication: COLON CANCER
     Dosage: CYCLICAL
     Dates: start: 20130820, end: 20140315
  4. LEVOFOLINIC ACID [Concomitant]

REACTIONS (2)
  - Groin pain [None]
  - Myalgia [None]
